FAERS Safety Report 8806970 (Version 2)
Quarter: 2012Q4

REPORT INFORMATION
  Report Type: 
  Country: US (occurrence: US)
  Receive Date: 20120925
  Receipt Date: 20121026
  Transmission Date: 20130627
  Serious: No
  Sender: FDA-Public Use
  Company Number: US-B.I. PHARMACEUTICALS,INC./RIDGEFIELD-2012-BP-23137BP

PATIENT
  Age: 83 Year
  Sex: Male
  Weight: 64 kg

DRUGS (5)
  1. SPIRIVA [Suspect]
     Indication: CHRONIC OBSTRUCTIVE PULMONARY DISEASE
     Dosage: 18 mcg
     Route: 055
     Dates: start: 20090624
  2. METRONIDAZOLE [Concomitant]
     Route: 048
  3. IPRATROPIUM BROMIDE [Concomitant]
     Indication: UPPER-AIRWAY COUGH SYNDROME
     Route: 045
  4. NEXIUM [Concomitant]
     Indication: GASTROOESOPHAGEAL REFLUX DISEASE
     Dosage: 40 mg
     Route: 048
     Dates: start: 2009
  5. ATORVASTATIN [Concomitant]
     Indication: BLOOD CHOLESTEROL INCREASED
     Dosage: 40 mg
     Route: 048
     Dates: start: 2000

REACTIONS (2)
  - Lung disorder [Not Recovered/Not Resolved]
  - Product quality issue [Not Recovered/Not Resolved]
